FAERS Safety Report 5030184-6 (Version None)
Quarter: 2006Q2

REPORT INFORMATION
  Report Type: 
  Country: None (occurrence: None)
  Receive Date: 20060614
  Receipt Date: 20060530
  Transmission Date: 20061013
  Serious: Yes (Death, Hospitalization)
  Sender: FDA-Public Use
  Company Number: FR200605006455

PATIENT
  Age: 53 Year
  Sex: Female

DRUGS (7)
  1. ALIMTA [Suspect]
     Indication: PLEURAL MESOTHELIOMA
     Dosage: 1000 MG, OTHER, INTRAVENOUS
     Route: 042
     Dates: start: 20041015, end: 20050107
  2. GEMZAR [Suspect]
     Indication: PLEURAL MESOTHELIOMA
     Dosage: 2500 MG, OTHER, INTRAVENOUS
     Route: 042
     Dates: start: 20050308, end: 20050401
  3. CISPLATIN [Concomitant]
  4. ATENOLOL [Concomitant]
  5. CYANOCOBALAMIN [Concomitant]
  6. SOLUPRED (PREDNISOLONE SODIUM SULFOBENZOATE) [Concomitant]
  7. VIVAMYNE (VITAMIN NOS) [Concomitant]

REACTIONS (3)
  - DEEP VEIN THROMBOSIS [None]
  - PULMONARY EMBOLISM [None]
  - SUBCLAVIAN VEIN THROMBOSIS [None]
